FAERS Safety Report 25247372 (Version 2)
Quarter: 2025Q3

REPORT INFORMATION
  Report Type: Spontaneous
  Country: GB (occurrence: GB)
  Receive Date: 20250428
  Receipt Date: 20250715
  Transmission Date: 20251020
  Serious: Yes (Other)
  Sender: PFIZER
  Company Number: GB-MHRA-EMIS-9452-f38cf993-e42e-4c39-a97f-7dc29349b29c

PATIENT
  Age: 24 Year
  Sex: Female
  Weight: 45 kg

DRUGS (5)
  1. DOXYCYCLINE [Suspect]
     Active Substance: DOXYCYCLINE
     Dosage: 1 DF, 1X/DAY
     Dates: start: 20250423
  2. FEXOFENADINE [Concomitant]
     Active Substance: FEXOFENADINE HYDROCHLORIDE
     Dosage: 1 DF, 1X/DAY
     Dates: start: 20250403
  3. DOXYCYCLINE [Concomitant]
     Active Substance: DOXYCYCLINE
     Dosage: 1 DF, 1X/DAY
     Dates: start: 20250423
  4. AZELAIC ACID [Concomitant]
     Active Substance: AZELAIC ACID
     Dosage: 60 G, 2X/DAY (APPLY TWICE A DAY)
     Dates: start: 20250423
  5. FLUCLOXACILLIN [Concomitant]
     Active Substance: FLUCLOXACILLIN
     Indication: Rash
     Dosage: 2 DF, 4X/DAY
     Dates: start: 20250424

REACTIONS (1)
  - Acute generalised exanthematous pustulosis [Unknown]

NARRATIVE: CASE EVENT DATE: 20250424
